FAERS Safety Report 6111323-2 (Version None)
Quarter: 2009Q1

REPORT INFORMATION
  Report Type: 
  Country: None (occurrence: None)
  Receive Date: 20090311
  Receipt Date: 20090304
  Transmission Date: 20090719
  Serious: Yes (Life-Threatening, Hospitalization)
  Sender: FDA-Public Use
  Company Number: US-ELI_LILLY_AND_COMPANY-US200903001109

PATIENT
  Sex: Female
  Weight: 58.957 kg

DRUGS (10)
  1. CYMBALTA [Suspect]
     Indication: DEPRESSION
     Dosage: 60 MG, DAILY (1/D)
     Route: 048
     Dates: start: 20080301
  2. CYMBALTA [Suspect]
     Dosage: 90 MG, DAILY (1/D)
     Route: 048
     Dates: end: 20090101
  3. CYMBALTA [Suspect]
     Dosage: 120 MG, DAILY (1/D)
     Route: 048
     Dates: start: 20090101, end: 20090201
  4. CYMBALTA [Suspect]
     Dosage: 60 MG, DAILY (1/D)
     Route: 048
     Dates: start: 20090201
  5. PROZAC [Suspect]
     Indication: DEPRESSION
     Dosage: 40 MG, UNK
     Dates: start: 20070601
  6. PROZAC [Suspect]
     Dosage: 80 MG, DAILY (1/D)
  7. PROZAC [Suspect]
     Dosage: 90 MG, DAILY (1/D)
  8. ABILIFY [Concomitant]
  9. ANTIHISTAMINES [Concomitant]
  10. CAFFEINE [Concomitant]
     Dosage: 80 G, OTHER
     Route: 048

REACTIONS (7)
  - ALCOHOL ABUSE [None]
  - DEPRESSION [None]
  - DRUG INEFFECTIVE [None]
  - PANIC ATTACK [None]
  - SUICIDE ATTEMPT [None]
  - TREMOR [None]
  - VOMITING [None]
